FAERS Safety Report 10572298 (Version 7)
Quarter: 2015Q1

REPORT INFORMATION
  Report Type: Spontaneous
  Country: US (occurrence: US)
  Receive Date: 20141109
  Receipt Date: 20150223
  Transmission Date: 20150720
  Serious: Yes (Other)
  Sender: FDA-Public Use
  Company Number: US-PFIZER INC-2014287055

PATIENT
  Age: 64 Year
  Sex: Female
  Weight: 58.96 kg

DRUGS (4)
  1. SULFASALAZINE. [Suspect]
     Active Substance: SULFASALAZINE
     Indication: COLITIS ULCERATIVE
     Dosage: 500 MG, 2X/DAY
  2. CALCIUM WITH VITAMIN D [Concomitant]
     Active Substance: CALCIUM\VITAMIN D
     Dosage: UNK
  3. SULFAZINE EC [Suspect]
     Active Substance: SULFASALAZINE
     Indication: COLITIS ULCERATIVE
     Dosage: 1000 MG (TWO BY MOUTH), 2X/DAY
     Route: 048
  4. SULFAZINE EC [Suspect]
     Active Substance: SULFASALAZINE
     Dosage: 500 MG, 4X/DAY
     Route: 048

REACTIONS (5)
  - Thirst [Unknown]
  - Malaise [Unknown]
  - Hyperphagia [Unknown]
  - Rectal haemorrhage [Unknown]
  - Haemorrhage [Not Recovered/Not Resolved]

NARRATIVE: CASE EVENT DATE: 201411
